FAERS Safety Report 13921761 (Version 2)
Quarter: 2017Q3

REPORT INFORMATION
  Report Type: Spontaneous
  Country: BG (occurrence: BG)
  Receive Date: 20170830
  Receipt Date: 20170927
  Transmission Date: 20171127
  Serious: Yes (Other)
  Sender: FDA-Public Use
  Company Number: PHHY2017BG016574

PATIENT
  Sex: Female

DRUGS (1)
  1. GILENYA [Suspect]
     Active Substance: FINGOLIMOD HYDROCHLORIDE
     Indication: FOETAL EXPOSURE DURING PREGNANCY
     Dosage: FETAL DRUG EXPOSURE VIA FATHER: 0.5 MG, QD (ORAL)
     Route: 050

REACTIONS (2)
  - Premature baby [Unknown]
  - Paternal exposure during pregnancy [Unknown]
